FAERS Safety Report 21940087 (Version 1)
Quarter: 2023Q1

REPORT INFORMATION
  Report Type: Spontaneous
  Country: CN (occurrence: CN)
  Receive Date: 20230201
  Receipt Date: 20230201
  Transmission Date: 20230417
  Serious: Yes (Other)
  Sender: FDA-Public Use
  Company Number: None

PATIENT
  Age: 40 Year
  Sex: Female
  Weight: 45 kg

DRUGS (4)
  1. CYCLOPHOSPHAMIDE [Suspect]
     Active Substance: CYCLOPHOSPHAMIDE
     Indication: Breast cancer female
     Dosage: 0.9 G, QD, (DILUTED WITH 50ML OF 0.9% SODIUM CHLORIDE INJECTION)
     Route: 041
     Dates: start: 20230103, end: 20230103
  2. SODIUM CHLORIDE [Suspect]
     Active Substance: SODIUM CHLORIDE
     Indication: Medication dilution
     Dosage: 50 ML, QD (USED TO DILUTE 0.9 G OF CYCLOPHOSPHAMIDE)
     Route: 041
     Dates: start: 20230103, end: 20230103
  3. SODIUM CHLORIDE [Suspect]
     Active Substance: SODIUM CHLORIDE
     Dosage: 250 ML, QD (USED TO DILUTE 110 MG  OF DOCETAXEL)
     Route: 041
     Dates: start: 20230103, end: 20230103
  4. DOCETAXEL [Suspect]
     Active Substance: DOCETAXEL
     Indication: Breast cancer female
     Dosage: 110 MG, QD (DILUTED WITH 250ML OF 0.9% SODIUM CHLORIDE INJECTION)
     Route: 041
     Dates: start: 20230103, end: 20230103

REACTIONS (1)
  - White blood cell count decreased [Recovered/Resolved]

NARRATIVE: CASE EVENT DATE: 20230119
